APPROVED DRUG PRODUCT: ERYTHROMYCIN
Active Ingredient: ERYTHROMYCIN
Strength: 500MG
Dosage Form/Route: TABLET;ORAL
Application: A215440 | Product #002
Applicant: ZYDUS PHARMACEUTICALS USA INC
Approved: Aug 31, 2023 | RLD: No | RS: No | Type: DISCN